FAERS Safety Report 7493956-4 (Version None)
Quarter: 2011Q2

REPORT INFORMATION
  Report Type: 
  Country: None (occurrence: None)
  Receive Date: 20110520
  Receipt Date: 20110511
  Transmission Date: 20111010
  Serious: Yes (Other)
  Sender: FDA-Public Use
  Company Number: CN-ROCHE-776919

PATIENT

DRUGS (1)
  1. OSELTAMIVIR [Suspect]
     Indication: H1N1 INFLUENZA
     Dosage: ONLY 23 OUT OF 62 PATIENTS STARTED 150 MG TWICE DAILY.
     Route: 048

REACTIONS (2)
  - DISORIENTATION [None]
  - HALLUCINATION [None]
